FAERS Safety Report 8963580 (Version 1)
Quarter: 2012Q4

REPORT INFORMATION
  Report Type: 
  Country: US (occurrence: US)
  Receive Date: 20121214
  Receipt Date: 20121214
  Transmission Date: 20130627
  Serious: Yes (Other)
  Sender: FDA-Public Use
  Company Number: US-ROCHE-1086350

PATIENT
  Sex: Male
  Weight: 92.62 kg

DRUGS (2)
  1. CELLCEPT [Suspect]
     Indication: PRODUCT USED FOR UNKNOWN INDICATION
     Route: 065
  2. INSULIN [Concomitant]

REACTIONS (8)
  - Kidney transplant rejection [Unknown]
  - Wound infection [Unknown]
  - Urinary tract infection [Unknown]
  - Urinary retention [Unknown]
  - Polyomavirus-associated nephropathy [Unknown]
  - Diabetic ketoacidosis [Unknown]
  - Renal impairment [Unknown]
  - Drug dose omission [Unknown]
